FAERS Safety Report 5895340-3 (Version None)
Quarter: 2008Q3

REPORT INFORMATION
  Report Type: 
  Country: None (occurrence: None)
  Receive Date: 20080924
  Receipt Date: 20080915
  Transmission Date: 20090109
  Serious: Yes (Death, Hospitalization)
  Sender: FDA-Public Use
  Company Number: IT-ELI_LILLY_AND_COMPANY-IT200711001474

PATIENT
  Sex: Female
  Weight: 47.2 kg

DRUGS (3)
  1. DULOXETINE HYDROCHLORIDE [Suspect]
     Indication: MAJOR DEPRESSION
     Dosage: 60 MG, EACH EVENING
     Route: 048
     Dates: start: 20070729
  2. TICLOPIDINE HCL [Concomitant]
     Indication: ANTIPLATELET THERAPY
     Dosage: 250 MG, 2/D
     Route: 065
     Dates: start: 20040101, end: 20071027
  3. MADOPAR [Concomitant]
     Indication: PARKINSON'S DISEASE
     Dosage: 250 MG, 4/D: 3/4+1/2+3/4+1/2 TABLET

REACTIONS (1)
  - CEREBRAL HAEMORRHAGE [None]
